FAERS Safety Report 6318733-9 (Version None)
Quarter: 2009Q3

REPORT INFORMATION
  Report Type: 
  Country: None (occurrence: None)
  Receive Date: 20090819
  Receipt Date: 20090807
  Transmission Date: 20100115
  Serious: Yes (Other)
  Sender: FDA-Public Use
  Company Number: TR-1170587

PATIENT
  Age: 40 Year
  Sex: Male

DRUGS (2)
  1. DEXAMETHASONE [Suspect]
     Indication: IRIDOCYCLITIS
     Dosage: Q3H OPHTHALMIC
     Route: 047
  2. CYCLOPENTOLATE HYDROCHLORIDE [Suspect]
     Indication: IRIDOCYCLITIS
     Dosage: OU BID OPTHALMIC
     Route: 047

REACTIONS (5)
  - INTRAOCULAR PRESSURE INCREASED [None]
  - IRIS TRANSILLUMINATION DEFECT [None]
  - NO THERAPEUTIC RESPONSE [None]
  - PIGMENT DISPERSION SYNDROME [None]
  - PUPIL FIXED [None]
